FAERS Safety Report 23229847 (Version 1)
Quarter: 2023Q4

REPORT INFORMATION
  Report Type: Spontaneous
  Country: US (occurrence: None)
  Receive Date: 20231127
  Receipt Date: 20231127
  Transmission Date: 20240109
  Serious: Yes (Hospitalization)
  Sender: FDA-Public Use
  Company Number: US-ROCHE-3364651

PATIENT
  Sex: Male

DRUGS (3)
  1. LUCENTIS [Suspect]
     Active Substance: RANIBIZUMAB
     Indication: Age-related macular degeneration
     Dosage: INJECT 0.5 MG, 0.05 ML INTRAVITREALLY INTO THE RIGHT EYE EVERY 58 DAYS.
     Route: 050
  2. LUCENTIS [Suspect]
     Active Substance: RANIBIZUMAB
  3. LUCENTIS [Suspect]
     Active Substance: RANIBIZUMAB

REACTIONS (2)
  - Off label use [Unknown]
  - Arthralgia [Unknown]
